FAERS Safety Report 5808994-4 (Version None)
Quarter: 2008Q3

REPORT INFORMATION
  Report Type: 
  Country: None (occurrence: None)
  Receive Date: 20080714
  Receipt Date: 20080707
  Transmission Date: 20090109
  Serious: Yes (Hospitalization)
  Sender: FDA-Public Use
  Company Number: US-JNJFOC-20080407265

PATIENT
  Sex: Male

DRUGS (2)
  1. HALOPERIDOL DECANOATE [Suspect]
     Route: 030
  2. HALOPERIDOL DECANOATE [Suspect]
     Indication: DRUG USE FOR UNKNOWN INDICATION
     Route: 030

REACTIONS (2)
  - DRUG PRESCRIBING ERROR [None]
  - INCORRECT DOSE ADMINISTERED [None]
